FAERS Safety Report 10428955 (Version 1)
Quarter: 2014Q3

REPORT INFORMATION
  Report Type: Spontaneous
  Country: CO (occurrence: CO)
  Receive Date: 20140904
  Receipt Date: 20140904
  Transmission Date: 20150326
  Serious: Yes (Hospitalization, Other)
  Sender: FDA-Public Use
  Company Number: CO-UCBSA-2014010738

PATIENT
  Age: 20 Year
  Sex: Female

DRUGS (2)
  1. RISPERIDONA [Concomitant]
     Active Substance: RISPERIDONE
     Dosage: DOSE UNKNOWN
  2. VIMPAT [Suspect]
     Active Substance: LACOSAMIDE
     Indication: EPILEPSY
     Dosage: DAILY DOSE: 100 MG
     Route: 048
     Dates: start: 20140731

REACTIONS (3)
  - Angina pectoris [Unknown]
  - Haematemesis [Unknown]
  - Generalised oedema [Unknown]

NARRATIVE: CASE EVENT DATE: 20140802
